FAERS Safety Report 10176274 (Version 1)
Quarter: 2014Q2

REPORT INFORMATION
  Report Type: Spontaneous
  Country: US (occurrence: None)
  Receive Date: 20140515
  Receipt Date: 20140515
  Transmission Date: 20141212
  Serious: Yes (Life-Threatening, Hospitalization)
  Sender: FDA-Public Use
  Company Number: None

PATIENT
  Age: 56 Year
  Sex: Female
  Weight: 83.92 kg

DRUGS (15)
  1. LISINOPRIL\HCTZ [Suspect]
     Indication: HYPERTENSION
     Dosage: 1 TABLET EVERY MORNING ONCE DAILY BY MOUTH
     Route: 048
     Dates: start: 20080410, end: 20130705
  2. LOSARTAN [Concomitant]
  3. HCTZ [Concomitant]
  4. INDOMETHACIN [Concomitant]
  5. VERAPAMIL [Concomitant]
  6. CARVEDILOL [Concomitant]
  7. ALLOPURINOL [Concomitant]
  8. OMPEPRAZOLE [Concomitant]
  9. THERAP-D 4000 [Concomitant]
  10. FOLIC ACID [Concomitant]
  11. ATORVASTATIN [Concomitant]
  12. CLONIDINE HCL [Concomitant]
  13. RANITIDINE [Concomitant]
  14. THEOPHYLLINE ER [Concomitant]
  15. COMBIVENT RESPIMAT [Concomitant]

REACTIONS (12)
  - Oral pain [None]
  - Swollen tongue [None]
  - Pharyngeal oedema [None]
  - Chest pain [None]
  - Abdominal discomfort [None]
  - Hypertension [None]
  - Cough [None]
  - Speech disorder [None]
  - Dyspnoea [None]
  - Oedema mouth [None]
  - Blood pressure inadequately controlled [None]
  - No therapeutic response [None]
